FAERS Safety Report 9854868 (Version 1)
Quarter: 2013Q4

REPORT INFORMATION
  Report Type: Spontaneous
  Country: US (occurrence: None)
  Receive Date: 20131226
  Receipt Date: 20131226
  Transmission Date: 20140711
  Serious: Yes (Other)
  Sender: FDA-Public Use
  Company Number: PHEH2013US013058

PATIENT
  Age: 57 Year
  Sex: Female

DRUGS (12)
  1. AFINITOR (RAD) UNKNOWN [Suspect]
     Route: 048
  2. COUMADINE (WARFARIN SODIUM) [Concomitant]
  3. FUROSEMIDE (FUROSEDMIDE) [Concomitant]
  4. SIMVASTATIN (SIMVASTATIN) [Concomitant]
  5. MORPHINE SULFATE (MORPHINE SULFATE) INJECTION [Concomitant]
  6. PERCOCET (OXYCODONE HYDROCHLORIDE, PARACETAMOL) [Concomitant]
  7. ZANEX (ENALAPRIL MALEATE, LERCANIDIPINE HYDROCHLORIDE) [Concomitant]
  8. TEMAZEPAM (TEMAZEPAM) [Concomitant]
  9. EXEMESTANE (EXEMESTANE) [Concomitant]
  10. LEVETIRACETAM (LEVETIRACETAM) [Concomitant]
  11. VITAMIN D (ERGOCALCIFEROL) [Concomitant]
  12. CALCIUM (CALCIUM) [Concomitant]

REACTIONS (7)
  - Eyelid oedema [None]
  - Eye swelling [None]
  - Swelling face [None]
  - Oral herpes [None]
  - Mouth haemorrhage [None]
  - Stomatitis [None]
  - Wheezing [None]
